FAERS Safety Report 9083343 (Version 1)
Quarter: 2013Q1

REPORT INFORMATION
  Report Type: Report from Study
  Country: US (occurrence: US)
  Receive Date: 20130131
  Receipt Date: 20130131
  Transmission Date: 20140127
  Serious: No
  Sender: FDA-Public Use
  Company Number: US-ABBOTT-12P-163-0994170-00

PATIENT
  Age: 40 Year
  Sex: Female

DRUGS (5)
  1. HUMIRA [Suspect]
     Indication: RHEUMATOID ARTHRITIS
     Dates: start: 20120928
  2. CELEXA [Concomitant]
     Indication: OBSESSIVE-COMPULSIVE DISORDER
  3. CELEXA [Concomitant]
     Indication: DEPRESSION
  4. IRON [Concomitant]
     Indication: ANAEMIA
     Dosage: 1 PILL A DAY
  5. PREDNISONE [Concomitant]
     Indication: RHEUMATOID ARTHRITIS

REACTIONS (1)
  - Asthenia [Recovered/Resolved]
